FAERS Safety Report 21800965 (Version 1)
Quarter: 2022Q4

REPORT INFORMATION
  Report Type: Report from Study
  Country: US (occurrence: US)
  Receive Date: 20221230
  Receipt Date: 20221230
  Transmission Date: 20230112
  Serious: Yes (Other)
  Sender: FDA-Public Use
  Company Number: US-BAYER-2022P032672

PATIENT
  Age: 55 Year
  Sex: Female
  Weight: 97.069 kg

DRUGS (1)
  1. ADEMPAS [Suspect]
     Active Substance: RIOCIGUAT
     Indication: Pulmonary arterial hypertension
     Dosage: 1.5MG DAILY
     Route: 048
     Dates: start: 20221114

REACTIONS (5)
  - Syncope [None]
  - Hypotension [Recovering/Resolving]
  - Contusion [None]
  - Fatigue [None]
  - Asthenia [None]

NARRATIVE: CASE EVENT DATE: 20221129
